FAERS Safety Report 22103445 (Version 1)
Quarter: 2023Q1

REPORT INFORMATION
  Report Type: Spontaneous
  Country: US (occurrence: None)
  Receive Date: 20230316
  Receipt Date: 20230316
  Transmission Date: 20230417
  Serious: Yes (Death, Hospitalization)
  Sender: FDA-Public Use
  Company Number: None

PATIENT
  Age: 91 Year
  Sex: Male
  Weight: 80 kg

DRUGS (7)
  1. CALQUENCE [Suspect]
     Active Substance: ACALABRUTINIB
     Indication: Chronic lymphocytic leukaemia
     Dosage: FREQUENCY : TWICE A DAY;?
     Route: 048
     Dates: start: 20200902, end: 20230308
  2. CITALOPRAM [Concomitant]
     Active Substance: CITALOPRAM HYDROBROMIDE
     Dates: start: 20171027
  3. FOLIC ACID [Concomitant]
     Active Substance: FOLIC ACID
     Dates: start: 20171027
  4. OXCARBAZEPINE [Concomitant]
     Active Substance: OXCARBAZEPINE
     Dates: start: 20171027
  5. OXYCODONE [Concomitant]
     Active Substance: OXYCODONE
     Dates: start: 20191008
  6. RAMIPRIL [Concomitant]
     Active Substance: RAMIPRIL
     Dates: start: 20171027
  7. SIMVASTATIN [Concomitant]
     Active Substance: SIMVASTATIN
     Dates: start: 20171027

REACTIONS (13)
  - Fall [None]
  - Limb injury [None]
  - Headache [None]
  - Unresponsive to stimuli [None]
  - Coma [None]
  - Areflexia [None]
  - Subdural haemorrhage [None]
  - Brain herniation [None]
  - Bradycardia [None]
  - Cardiac arrest [None]
  - Respiratory arrest [None]
  - Pulse absent [None]
  - Pupil fixed [None]

NARRATIVE: CASE EVENT DATE: 20230307
